FAERS Safety Report 10514528 (Version 5)
Quarter: 2014Q4

REPORT INFORMATION
  Report Type: Report from Study
  Country: US (occurrence: US)
  Receive Date: 20141013
  Receipt Date: 20141203
  Transmission Date: 20150528
  Serious: Yes (Other)
  Sender: FDA-Public Use
  Company Number: US-BAYER-2014-125437

PATIENT
  Age: 77 Year
  Sex: Female

DRUGS (2)
  1. NEXAVAR [Suspect]
     Active Substance: SORAFENIB
     Indication: HEPATIC CANCER
     Dosage: 2X200 MG AM AND 1X200MG PM
     Route: 048
     Dates: start: 20140723
  2. NEXAVAR [Suspect]
     Active Substance: SORAFENIB
     Indication: HEPATIC CANCER
     Dosage: 400 MG, BID
     Route: 048

REACTIONS (7)
  - Vomiting [None]
  - Decreased appetite [None]
  - Fluid intake reduced [None]
  - Dry skin [None]
  - Glossodynia [None]
  - Immunodeficiency [None]
  - Erythema [None]

NARRATIVE: CASE EVENT DATE: 20140815
